FAERS Safety Report 5794817-9 (Version None)
Quarter: 2008Q2

REPORT INFORMATION
  Report Type: 
  Country: None (occurrence: None)
  Receive Date: 20080630
  Receipt Date: 20080626
  Transmission Date: 20081010
  Serious: Yes (Hospitalization)
  Sender: FDA-Public Use
  Company Number: B0419036B

PATIENT
  Age: 28 Year
  Sex: Female

DRUGS (8)
  1. COMBIVIR [Suspect]
     Indication: HIV INFECTION
     Dosage: 1TAB TWICE PER DAY
     Route: 048
     Dates: start: 20040301, end: 20080521
  2. TENOFOVIR [Suspect]
     Indication: HIV INFECTION
     Dosage: 300MG PER DAY
     Route: 048
     Dates: start: 20040301
  3. COTRIMOXAZOLE [Suspect]
  4. FLUCONAZOLE [Concomitant]
  5. STAVUDINE [Concomitant]
     Indication: HIV INFECTION
     Dosage: 30MG TWICE PER DAY
     Dates: start: 20080521
  6. LAMIVUDINE [Concomitant]
     Indication: HIV INFECTION
     Dosage: 150MG PER DAY
     Dates: start: 20080521
  7. LOPINAVIR AND RITONAVIR [Concomitant]
  8. NEVIRAPINE [Concomitant]

REACTIONS (7)
  - ABDOMINAL PAIN [None]
  - DYSPNOEA [None]
  - FEELING HOT [None]
  - HEADACHE [None]
  - NAUSEA [None]
  - PANCYTOPENIA [None]
  - VOMITING [None]
